FAERS Safety Report 9834172 (Version 4)
Quarter: 2014Q3

REPORT INFORMATION
  Report Type: Spontaneous
  Country: US (occurrence: US)
  Receive Date: 20140122
  Receipt Date: 20140714
  Transmission Date: 20150326
  Serious: No
  Sender: FDA-Public Use
  Company Number: US-009507513-1401USA006304

PATIENT
  Sex: Male

DRUGS (3)
  1. PROPECIA [Suspect]
     Active Substance: FINASTERIDE
     Indication: ALOPECIA
     Dosage: 1 MG, QD
     Route: 048
     Dates: start: 20091022, end: 2012
  2. PROSCAR [Suspect]
     Active Substance: FINASTERIDE
     Indication: ALOPECIA
     Dosage: 5 MG, QD
     Route: 048
     Dates: start: 2010, end: 2012
  3. FINASTERIDE. [Suspect]
     Active Substance: FINASTERIDE
     Indication: ALOPECIA
     Dosage: 5 MG, QD
     Route: 048
     Dates: start: 2010, end: 2012

REACTIONS (16)
  - Blood testosterone decreased [Not Recovered/Not Resolved]
  - Wrong technique in drug usage process [Unknown]
  - Arthroscopy [Unknown]
  - Anxiety [Unknown]
  - Dyslipidaemia [Unknown]
  - Drug administration error [Unknown]
  - Varicose vein [Unknown]
  - Meniscus injury [Unknown]
  - Eczema [Unknown]
  - Dermatitis [Unknown]
  - Nocturia [Unknown]
  - Sexual dysfunction [Not Recovered/Not Resolved]
  - Erectile dysfunction [Not Recovered/Not Resolved]
  - Arthritis [Unknown]
  - Semen volume decreased [Not Recovered/Not Resolved]
  - Libido decreased [Not Recovered/Not Resolved]

NARRATIVE: CASE EVENT DATE: 200910
